FAERS Safety Report 23518413 (Version 1)
Quarter: 2024Q1

REPORT INFORMATION
  Report Type: Spontaneous
  Country: US (occurrence: US)
  Receive Date: 20240213
  Receipt Date: 20240213
  Transmission Date: 20240410
  Serious: Yes (Other)
  Sender: FDA-Public Use
  Company Number: US-ELI_LILLY_AND_COMPANY-US202402004521

PATIENT
  Age: 32 Year
  Sex: Female

DRUGS (2)
  1. HUMULIN R [Suspect]
     Active Substance: INSULIN HUMAN
     Indication: Diabetes mellitus inadequate control
     Dosage: 70 U, DAILY
     Route: 065
     Dates: start: 2013
  2. HUMULIN R [Suspect]
     Active Substance: INSULIN HUMAN
     Dosage: 100 U, DAILY (90 TO 100 UNITS PER DAY)
     Route: 065
     Dates: start: 2003

REACTIONS (2)
  - Blood glucose increased [Unknown]
  - Stress [Unknown]
